FAERS Safety Report 8376538-1 (Version None)
Quarter: 2012Q2

REPORT INFORMATION
  Report Type: 
  Country: None (occurrence: None)
  Receive Date: 20120522
  Receipt Date: 20120516
  Transmission Date: 20120825
  Serious: Yes (Hospitalization)
  Sender: FDA-Public Use
  Company Number: US-BAYER-2012-049499

PATIENT
  Age: 47 Year
  Sex: Female
  Weight: 71 kg

DRUGS (11)
  1. KLONOPIN [Concomitant]
     Dosage: 1 MG, QD
     Route: 048
  2. SERTRALINE HYDROCHLORIDE [Concomitant]
     Dosage: 100 MG, BID
     Route: 048
  3. RELPAX [Concomitant]
  4. YAZ [Suspect]
  5. VICODIN [Concomitant]
     Dosage: 10 MG, Q4HR
     Route: 048
  6. CLONAZEPAM [Concomitant]
  7. FLEXERIL [Concomitant]
     Route: 048
  8. DROSPIRENONE AND ETHINYL ESTRADIOL [Suspect]
  9. LAMICTAL [Concomitant]
     Dosage: 200 MG, QD
     Route: 048
  10. ABILIFY [Concomitant]
     Dosage: 5 MG, UNK
  11. ALESSE [Concomitant]

REACTIONS (2)
  - DEEP VEIN THROMBOSIS [None]
  - THROMBOPHLEBITIS SUPERFICIAL [None]
